FAERS Safety Report 8030789-4 (Version None)
Quarter: 2012Q1

REPORT INFORMATION
  Report Type: 
  Country: None (occurrence: None)
  Receive Date: 20120109
  Receipt Date: 20120106
  Transmission Date: 20120608
  Serious: Yes (Hospitalization)
  Sender: FDA-Public Use
  Company Number: US-ROCHE-1028381

PATIENT
  Sex: Male
  Weight: 78.7 kg

DRUGS (8)
  1. AVASTIN [Suspect]
     Indication: GLIOBLASTOMA
     Dosage: COMPLETED 5 CYCLES
     Route: 042
     Dates: start: 20110801
  2. THORAZINE (UNITED STATES) [Concomitant]
     Indication: HICCUPS
     Route: 048
  3. PRILOSEC [Concomitant]
     Route: 048
  4. FLOMAX [Concomitant]
     Route: 048
  5. DUTASTERIDE [Concomitant]
     Route: 048
  6. LEVOXYL [Concomitant]
     Route: 048
  7. VORINOSTAT [Suspect]
     Indication: PRODUCT USED FOR UNKNOWN INDICATION
     Dosage: 7 ON 7 OFF,COMPLETED 5 CYCLES
     Route: 048
     Dates: start: 20110801
  8. MIRALAX [Concomitant]
     Route: 048

REACTIONS (2)
  - DEHYDRATION [None]
  - CONFUSIONAL STATE [None]
